FAERS Safety Report 16698027 (Version 1)
Quarter: 2020Q3

REPORT INFORMATION
  Report Type: Report from Study
  Country: TR (occurrence: TR)
  Receive Date: 20190813
  Receipt Date: 20190813
  Transmission Date: 20201105
  Serious: Yes (Death, Other)
  Sender: FDA-Public Use
  Company Number: TR-ROCHE-2362537

PATIENT
  Sex: Male
  Weight: 55 kg

DRUGS (1)
  1. POLATUZUMAB VEDOTIN. [Suspect]
     Active Substance: POLATUZUMAB VEDOTIN
     Indication: DIFFUSE LARGE B-CELL LYMPHOMA
     Route: 065
     Dates: start: 20190610, end: 20190722

REACTIONS (5)
  - Diarrhoea [Unknown]
  - Sepsis [Fatal]
  - Cardiac failure [Fatal]
  - Neutropenia [Unknown]
  - Neutropenia [Fatal]
